FAERS Safety Report 9135700 (Version 1)
Quarter: 2013Q1

REPORT INFORMATION
  Report Type: Spontaneous
  Country: FR (occurrence: FR)
  Receive Date: 20130304
  Receipt Date: 20130304
  Transmission Date: 20140127
  Serious: Yes (Hospitalization)
  Sender: FDA-Public Use
  Company Number: PHHY2013FR020324

PATIENT
  Sex: Male

DRUGS (9)
  1. DOCETAXEL [Suspect]
     Indication: PROSTATE CANCER
     Dates: start: 20121019, end: 20121108
  2. EMEND [Concomitant]
  3. SOLUPRED [Concomitant]
  4. KERLONE [Concomitant]
  5. LISINOPRIL [Concomitant]
  6. FENOFIBRATE [Concomitant]
  7. DITROPAN [Concomitant]
  8. ZYLORIC [Concomitant]
  9. ZOPHREN [Concomitant]

REACTIONS (1)
  - Paraparesis [Not Recovered/Not Resolved]
